FAERS Safety Report 5135949-8 (Version None)
Quarter: 2006Q4

REPORT INFORMATION
  Report Type: 
  Country: None (occurrence: None)
  Receive Date: 20061020
  Receipt Date: 20061009
  Transmission Date: 20070319
  Serious: Yes (Hospitalization, Disabling, Other)
  Sender: FDA-Public Use
  Company Number: 2006120017

PATIENT
  Age: 46 Year
  Sex: Female

DRUGS (3)
  1. ALPRAZOLAM [Suspect]
     Indication: INSOMNIA
     Dosage: 0.5 MG (0.5 MG, AS NEEDED), ORAL
     Route: 048
     Dates: start: 20000101
  2. NITROFURANTOIN [Suspect]
     Dates: start: 20061001, end: 20061001
  3. OMEPRAZOLE [Concomitant]

REACTIONS (7)
  - ANOREXIA [None]
  - ASTHENIA [None]
  - DEPRESSION [None]
  - NAUSEA [None]
  - STOMACH DISCOMFORT [None]
  - URINARY TRACT INFECTION [None]
  - UTERINE LEIOMYOMA [None]
